FAERS Safety Report 4915235-9 (Version None)
Quarter: 2006Q1

REPORT INFORMATION
  Report Type: 
  Country: None (occurrence: None)
  Receive Date: 20060216
  Receipt Date: 20060216
  Transmission Date: 20060701
  Serious: Yes (Hospitalization)
  Sender: FDA-Public Use
  Company Number: None

PATIENT
  Sex: Female
  Weight: 84.8226 kg

DRUGS (5)
  1. PLAVIX [Suspect]
     Indication: CORONARY ARTERY DISEASE
     Dosage: 75 MG PO QD
     Route: 048
     Dates: start: 20050310
  2. CONTRAST DYE [Suspect]
     Dates: start: 20050309
  3. ASPIRIN [Concomitant]
  4. ATENOLOL [Concomitant]
  5. CRESTOR [Concomitant]

REACTIONS (6)
  - ANGIONEUROTIC OEDEMA [None]
  - CONTRAST MEDIA REACTION [None]
  - OEDEMA MOUTH [None]
  - PARAESTHESIA ORAL [None]
  - PRURITUS [None]
  - URTICARIA [None]
